FAERS Safety Report 7373157-0 (Version None)
Quarter: 2011Q1

REPORT INFORMATION
  Report Type: 
  Country: None (occurrence: None)
  Receive Date: 20110324
  Receipt Date: 20110321
  Transmission Date: 20110831
  Serious: Yes (Hospitalization)
  Sender: FDA-Public Use
  Company Number: DE-TEVA-272711GER

PATIENT
  Age: 44 Year
  Sex: Female

DRUGS (3)
  1. LAMOTRIGINE [Suspect]
     Indication: MAJOR DEPRESSION
  2. DIAZEPAM [Suspect]
     Indication: MAJOR DEPRESSION
  3. VENLAFAXINE [Suspect]
     Indication: MAJOR DEPRESSION

REACTIONS (3)
  - SEROTONIN SYNDROME [None]
  - INTENTIONAL OVERDOSE [None]
  - LOSS OF CONSCIOUSNESS [None]
